FAERS Safety Report 19758499 (Version 1)
Quarter: 2021Q3

REPORT INFORMATION
  Report Type: Spontaneous
  Country: US (occurrence: US)
  Receive Date: 20210828
  Receipt Date: 20210828
  Transmission Date: 20211014
  Serious: Yes (Death)
  Sender: FDA-Public Use
  Company Number: NVSC2021US194894

PATIENT
  Sex: Female

DRUGS (1)
  1. HYCAMTIN [Suspect]
     Active Substance: TOPOTECAN HYDROCHLORIDE
     Indication: LUNG NEOPLASM
     Dosage: 3 DF, QD (3.75 MG TOTAL FOR 5 DAYS EVERY 21 DAYS)
     Route: 048
     Dates: start: 20200212

REACTIONS (1)
  - Death [Fatal]
